FAERS Safety Report 5482427-2 (Version None)
Quarter: 2007Q4

REPORT INFORMATION
  Report Type: 
  Country: None (occurrence: None)
  Receive Date: 20071011
  Receipt Date: 20071008
  Transmission Date: 20080405
  Serious: Yes (Death)
  Sender: FDA-Public Use
  Company Number: B0490713A

PATIENT
  Age: 61 Year
  Sex: Male

DRUGS (16)
  1. ZOTON [Suspect]
     Indication: PROPHYLAXIS
     Route: 048
     Dates: start: 20070528, end: 20070709
  2. VANCOMYCIN HCL [Suspect]
     Indication: PROPHYLAXIS
     Dosage: 1G TWICE PER DAY
     Route: 065
  3. LOSEC [Suspect]
     Indication: PROPHYLAXIS
     Route: 042
  4. ENOXAPARIN SODIUM [Suspect]
     Indication: PROPHYLAXIS
     Route: 065
  5. DIFENE [Suspect]
     Indication: PROPHYLAXIS
     Route: 065
  6. SEPTRIN [Suspect]
     Indication: PROPHYLAXIS
     Route: 065
  7. TARGOCID [Suspect]
     Indication: PROPHYLAXIS
     Route: 065
  8. VELOSEF [Suspect]
     Indication: PROPHYLAXIS
     Route: 065
     Dates: start: 20070625, end: 20070626
  9. INNOHEP [Suspect]
     Indication: PROPHYLAXIS
     Route: 065
     Dates: start: 20070622
  10. ZYVOX [Suspect]
     Indication: PROPHYLAXIS
     Route: 065
  11. INDAPAMIDE [Concomitant]
  12. VALSARTAN [Concomitant]
  13. FLAGYL [Concomitant]
  14. BISOPROLOL FUMARATE [Concomitant]
  15. ASPIRIN [Concomitant]
  16. FUCIDINE CAP [Concomitant]

REACTIONS (1)
  - TOXIC EPIDERMAL NECROLYSIS [None]
